FAERS Safety Report 4654381-4 (Version None)
Quarter: 2005Q2

REPORT INFORMATION
  Report Type: 
  Country: None (occurrence: None)
  Receive Date: 20050506
  Receipt Date: 20050427
  Transmission Date: 20051028
  Serious: Yes (Other)
  Sender: FDA-Public Use
  Company Number: US-JNJFOC-20050407130

PATIENT
  Sex: Female
  Weight: 90.72 kg

DRUGS (19)
  1. REMICADE [Suspect]
     Route: 042
  2. REMICADE [Suspect]
     Indication: RHEUMATOID ARTHRITIS
     Route: 042
  3. ARAVA [Concomitant]
     Indication: RHEUMATOID ARTHRITIS
  4. LIPITOR [Concomitant]
  5. POTASSIUM CL [Concomitant]
  6. PLAVIX [Concomitant]
  7. ACTINOL [Concomitant]
  8. CLIMARA [Concomitant]
  9. WELLBUTRIN SR [Concomitant]
  10. SINGULAIR [Concomitant]
  11. NEURONTIN [Concomitant]
  12. NASONEX [Concomitant]
  13. ASTELIN [Concomitant]
  14. ADVAIR DISKUS 100/50 [Concomitant]
  15. ADVAIR DISKUS 100/50 [Concomitant]
     Indication: ASTHMA
     Dosage: 500-50 2 TIMES DAILY
  16. PERCOCET [Concomitant]
  17. PERCOCET [Concomitant]
     Dosage: 10-325 2-4 TIMES DAILY
  18. DIOVAN [Concomitant]
     Indication: HYPERTENSION
  19. PREVACID [Concomitant]

REACTIONS (8)
  - BLOOD POTASSIUM DECREASED [None]
  - BLOOD PRESSURE INCREASED [None]
  - CHEST PAIN [None]
  - HEART RATE INCREASED [None]
  - HEPATIC ENZYME INCREASED [None]
  - RHEUMATOID ARTHRITIS [None]
  - TEMPORAL ARTERITIS [None]
  - TOOTH INFECTION [None]
